FAERS Safety Report 4326834-X (Version None)
Quarter: 2004Q1

REPORT INFORMATION
  Report Type: 
  Country: None (occurrence: None)
  Receive Date: 20040322
  Receipt Date: 20040303
  Transmission Date: 20041129
  Serious: Yes (Hospitalization)
  Sender: FDA-Public Use
  Company Number: SU-2004-002185

PATIENT
  Age: 54 Year
  Sex: Female
  Weight: 86.1834 kg

DRUGS (5)
  1. BENICAR HCT [Suspect]
     Indication: HYPERTENSION
     Dosage: 20.125 MG QD PO
     Route: 048
     Dates: start: 20031215, end: 20040217
  2. ADVAIR DISKUS 100/50 [Concomitant]
  3. SEREVENT [Concomitant]
  4. ZYRTEC [Concomitant]
  5. FLONASE [Concomitant]

REACTIONS (1)
  - HYPOTENSION [None]
